FAERS Safety Report 9788021 (Version 1)
Quarter: 2013Q4

REPORT INFORMATION
  Report Type: Spontaneous
  Country: DE (occurrence: DE)
  Receive Date: 20131230
  Receipt Date: 20131230
  Transmission Date: 20140711
  Serious: Yes (Other)
  Sender: FDA-Public Use
  Company Number: DE-UCBSA-106912

PATIENT
  Sex: Male

DRUGS (1)
  1. LEGANTO [Suspect]
     Dosage: DOSE: UNKNOWN

REACTIONS (1)
  - Neoplasm malignant [Recovering/Resolving]
